FAERS Safety Report 19010747 (Version 1)
Quarter: 2021Q1

REPORT INFORMATION
  Report Type: Spontaneous
  Country: US (occurrence: US)
  Receive Date: 20210316
  Receipt Date: 20210316
  Transmission Date: 20210420
  Serious: No
  Sender: FDA-Public Use
  Company Number: US-ORGANON-O2103USA001184

PATIENT
  Sex: Female

DRUGS (2)
  1. NASONEX [Suspect]
     Active Substance: MOMETASONE FUROATE
     Dosage: UNK, QD
  2. NASONEX NASAL SPRAY INHALER (DEVICE) [Suspect]
     Active Substance: DEVICE

REACTIONS (3)
  - Exposure via eye contact [Unknown]
  - Accidental exposure to product [Unknown]
  - No adverse event [Unknown]
